FAERS Safety Report 9535864 (Version 1)
Quarter: 2013Q2

REPORT INFORMATION
  Report Type: Spontaneous
  Country: US (occurrence: None)
  Receive Date: 20130507
  Receipt Date: 20130507
  Transmission Date: 20140414
  Serious: Yes (Other)
  Sender: FDA-Public Use
  Company Number: PHEH2012US024755

PATIENT
  Sex: Female

DRUGS (1)
  1. AFINITOR (RAD) UNKNOWN [Suspect]

REACTIONS (1)
  - Stomatitis [None]
